FAERS Safety Report 6480386-7 (Version None)
Quarter: 2009Q4

REPORT INFORMATION
  Report Type: 
  Country: None (occurrence: None)
  Receive Date: 20091208
  Receipt Date: 20091127
  Transmission Date: 20100525
  Serious: Yes (Life-Threatening)
  Sender: FDA-Public Use
  Company Number: AU-ELI_LILLY_AND_COMPANY-AU200911001439

PATIENT
  Sex: Male

DRUGS (4)
  1. ZYPREXA [Suspect]
     Indication: DEPRESSION
     Dosage: 0.625MG-2.5 MG, DAILY (1/D)
     Dates: start: 20080401, end: 20090820
  2. CYMBALTA [Suspect]
     Indication: DEPRESSION
     Dosage: 60 MG, DAILY (1/D)
     Dates: start: 20081029
  3. BACTRIM DS [Concomitant]
     Dosage: 160/800MG , DAILY
     Route: 065
  4. SOMAC [Concomitant]
     Indication: DYSPEPSIA
     Dosage: 40 MG, DAILY (1/D)
     Route: 065

REACTIONS (2)
  - NEUTROPHIL COUNT DECREASED [None]
  - WHITE BLOOD CELL COUNT DECREASED [None]
